FAERS Safety Report 10692049 (Version 2)
Quarter: 2015Q1

REPORT INFORMATION
  Report Type: Report from Study
  Country: US (occurrence: US)
  Receive Date: 20150106
  Receipt Date: 20150325
  Transmission Date: 20150720
  Serious: No
  Sender: FDA-Public Use
  Company Number: US-ALEXION-A201404897

PATIENT

DRUGS (1)
  1. SOLIRIS [Suspect]
     Active Substance: ECULIZUMAB
     Indication: PRODUCT USED FOR UNKNOWN INDICATION
     Dosage: UNK
     Route: 042

REACTIONS (3)
  - Headache [Recovered/Resolved]
  - Incorrect dose administered [Unknown]
  - Dizziness [Unknown]

NARRATIVE: CASE EVENT DATE: 20150316
